FAERS Safety Report 8664452 (Version 2)
Quarter: 2012Q4

REPORT INFORMATION
  Report Type: 
  Country: US (occurrence: US)
  Receive Date: 20120713
  Receipt Date: 20120926
  Transmission Date: 20130627
  Serious: Yes (Other)
  Sender: FDA-Public Use
  Company Number: US-BAYER-2012-069413

PATIENT
  Age: 42 None
  Sex: Female

DRUGS (2)
  1. MIRENA [Suspect]
     Indication: CONTRACEPTION
     Dosage: 20 mcg/24hr, CONT
     Route: 015
     Dates: start: 20070727, end: 20120626
  2. YAZ [Suspect]
     Indication: MENSTRUATION IRREGULAR
     Dosage: UNK
     Route: 048
     Dates: start: 201111

REACTIONS (13)
  - Raynaud^s phenomenon [None]
  - Menstruation irregular [Recovered/Resolved]
  - Fatigue [Recovered/Resolved]
  - Asthenia [Recovered/Resolved]
  - Migraine [Recovered/Resolved]
  - Systemic lupus erythematosus [None]
  - Rash [None]
  - Alopecia [None]
  - Antinuclear antibody positive [None]
  - Autoantibody positive [None]
  - Rheumatoid factor positive [None]
  - Arthralgia [None]
  - Pallor [None]
